FAERS Safety Report 4378391-X (Version None)
Quarter: 2004Q2

REPORT INFORMATION
  Report Type: 
  Country: None (occurrence: None)
  Receive Date: 20040616
  Receipt Date: 20040602
  Transmission Date: 20050107
  Serious: Yes (Hospitalization)
  Sender: FDA-Public Use
  Company Number: JP-MERCK-0406USA00268

PATIENT
  Age: 49 Year
  Sex: Male

DRUGS (8)
  1. ECABET SODIUM [Concomitant]
     Route: 065
     Dates: start: 19990101
  2. FLUTICASONE PROPIONATE [Concomitant]
     Route: 065
     Dates: start: 19990101
  3. SINGULAIR [Suspect]
     Route: 048
     Dates: start: 20010201, end: 20020401
  4. PRANLUKAST [Suspect]
     Route: 048
     Dates: start: 20000801, end: 20010201
  5. PROCATEROL HYDROCHLORIDE [Concomitant]
     Route: 065
     Dates: start: 19990101
  6. SUPLATAST TOSYLATE [Concomitant]
     Route: 065
     Dates: start: 19990101, end: 20020701
  7. THEOPHYLLINE [Concomitant]
     Route: 065
     Dates: start: 19990101, end: 20020701
  8. ZAFIRLUKAST [Suspect]
     Route: 048
     Dates: start: 20020401, end: 20020701

REACTIONS (1)
  - ALLERGIC GRANULOMATOUS ANGIITIS [None]
